FAERS Safety Report 10600162 (Version 2)
Quarter: 2014Q4

REPORT INFORMATION
  Report Type: Report from Study
  Country: US (occurrence: US)
  Receive Date: 20141122
  Receipt Date: 20141122
  Transmission Date: 20150529
  Serious: Yes (Hospitalization, Other)
  Sender: FDA-Public Use
  Company Number: US-ABBVIE-11P-163-0707638-00

PATIENT
  Age: 70 Year
  Sex: Female
  Weight: 66.28 kg

DRUGS (19)
  1. HUMIRA [Suspect]
     Active Substance: ADALIMUMAB
     Indication: RHEUMATOID ARTHRITIS
     Route: 065
     Dates: start: 2004
  2. MELOXICAM. [Suspect]
     Active Substance: MELOXICAM
     Indication: INFLAMMATION
  3. ZOLOFT [Concomitant]
     Active Substance: SERTRALINE HYDROCHLORIDE
     Indication: DEPRESSION
     Route: 048
  4. WELLBUTRIN SR [Concomitant]
     Active Substance: BUPROPION HYDROCHLORIDE
     Indication: DEPRESSION
  5. LAMICTAL [Suspect]
     Active Substance: LAMOTRIGINE
     Indication: BIPOLAR DISORDER
     Route: 065
     Dates: start: 2011, end: 201305
  6. ETODOLAC. [Suspect]
     Active Substance: ETODOLAC
     Indication: PAIN
     Route: 048
  7. ALPRAZOLAM. [Concomitant]
     Active Substance: ALPRAZOLAM
     Dosage: 1.5 MG DAILY
     Route: 048
  8. AMLODIPINE [Concomitant]
     Active Substance: AMLODIPINE BESYLATE
     Indication: HYPERTENSION
     Route: 048
  9. TYLENOL [Concomitant]
     Active Substance: ACETAMINOPHEN
     Indication: PAIN
     Dosage: 250-500 MG 2-3 TIMES PER WEEK AS NEEDED
  10. HUMIRA [Suspect]
     Active Substance: ADALIMUMAB
     Route: 065
  11. HUMIRA [Suspect]
     Active Substance: ADALIMUMAB
     Indication: RHEUMATOID ARTHRITIS
     Route: 065
  12. ALPRAZOLAM. [Concomitant]
     Active Substance: ALPRAZOLAM
     Indication: ANXIETY
     Route: 048
  13. MULTIVIT [Concomitant]
     Active Substance: VITAMINS
     Indication: PRODUCT USED FOR UNKNOWN INDICATION
  14. MELOXICAM. [Suspect]
     Active Substance: MELOXICAM
     Indication: PAIN
     Route: 065
  15. HUMIRA [Suspect]
     Active Substance: ADALIMUMAB
     Route: 065
  16. LEVOTHYROXINE [Concomitant]
     Active Substance: LEVOTHYROXINE
     Indication: THYROID DISORDER
     Route: 048
  17. BABY ASA [Concomitant]
     Active Substance: ASPIRIN
     Indication: PRODUCT USED FOR UNKNOWN INDICATION
  18. ZOLOFT [Concomitant]
     Active Substance: SERTRALINE HYDROCHLORIDE
  19. OMEGA 3 [Concomitant]
     Active Substance: OMEGA-3 FATTY ACIDS
     Indication: PRODUCT USED FOR UNKNOWN INDICATION

REACTIONS (43)
  - Ankle fracture [Unknown]
  - Hypoaesthesia [Unknown]
  - Balance disorder [Unknown]
  - Sinus disorder [Not Recovered/Not Resolved]
  - Bradycardia [Recovering/Resolving]
  - Blood cholesterol increased [Recovering/Resolving]
  - Gait disturbance [Not Recovered/Not Resolved]
  - Pain in extremity [Not Recovered/Not Resolved]
  - Essential tremor [Unknown]
  - Asthenia [Unknown]
  - Impaired healing [Not Recovered/Not Resolved]
  - Arthralgia [Recovered/Resolved]
  - Genital herpes [Unknown]
  - Fall [Unknown]
  - Pyrexia [Recovered/Resolved]
  - Somnolence [Not Recovered/Not Resolved]
  - Somnolence [Not Recovered/Not Resolved]
  - Pulmonary fibrosis [Recovering/Resolving]
  - Pain [Not Recovered/Not Resolved]
  - Anxiety [Recovering/Resolving]
  - Aortic aneurysm [Not Recovered/Not Resolved]
  - Neuropathy peripheral [Not Recovered/Not Resolved]
  - Fall [Unknown]
  - Neuralgia [Recovered/Resolved]
  - Peritonsillar abscess [Recovered/Resolved]
  - Fatigue [Not Recovered/Not Resolved]
  - Tooth extraction [Recovered/Resolved]
  - Benign neoplasm [Unknown]
  - Walking aid user [Unknown]
  - Pain in jaw [Unknown]
  - Crepitations [Recovering/Resolving]
  - Hypertension [Recovering/Resolving]
  - Inflammation [Recovering/Resolving]
  - Peritonsillar abscess [Recovered/Resolved]
  - Tooth repair [Unknown]
  - Tremor [Recovering/Resolving]
  - Blood pressure increased [Recovered/Resolved]
  - Neuropathy peripheral [Unknown]
  - Cataract [Unknown]
  - Jaw fracture [Unknown]
  - Fibromyalgia [Unknown]
  - Pain [Recovering/Resolving]
  - Transient ischaemic attack [Unknown]

NARRATIVE: CASE EVENT DATE: 2007
